FAERS Safety Report 5007881-1 (Version None)
Quarter: 2006Q2

REPORT INFORMATION
  Report Type: 
  Country: None (occurrence: None)
  Receive Date: 20060518
  Receipt Date: 20060502
  Transmission Date: 20061013
  Serious: Yes (Other)
  Sender: FDA-Public Use
  Company Number: DSA_28162_2006

PATIENT
  Age: 53 Year
  Sex: Female

DRUGS (2)
  1. ENALAPRIL MALEATE [Suspect]
     Dosage: DF PO
     Route: 048
     Dates: start: 19930101
  2. ASCAL /00002702/ [Concomitant]

REACTIONS (2)
  - ALVEOLITIS [None]
  - DRUG HYPERSENSITIVITY [None]
